FAERS Safety Report 6537017-7 (Version None)
Quarter: 2010Q1

REPORT INFORMATION
  Report Type: 
  Country: None (occurrence: None)
  Receive Date: 20100108
  Receipt Date: 20091228
  Transmission Date: 20100710
  Serious: Yes (Hospitalization)
  Sender: FDA-Public Use
  Company Number: DSU-2009-02222

PATIENT
  Sex: Male
  Weight: 96.1626 kg

DRUGS (10)
  1. WELCHOL [Suspect]
     Indication: HYPERLIPIDAEMIA
     Dosage: SEE IMAGE
     Route: 048
     Dates: start: 20090101, end: 20090101
  2. WELCHOL [Suspect]
     Indication: HYPERLIPIDAEMIA
     Dosage: SEE IMAGE
     Route: 048
     Dates: start: 20091001
  3. PRILOSEC (OMEPRAZOLE) (OMEPRAZOLE) [Concomitant]
  4. ZANTAC (RANITIDINE HYDROCHLORIDE) (RANITIDINE HYDROCHLORIDE) [Concomitant]
  5. PLAVIX [Concomitant]
  6. METOPROLOL (METOPROLOL) [Concomitant]
  7. LYRICA (PREGABALEN) [Concomitant]
  8. MULTI-VITAMINS [Concomitant]
  9. OMEGA 3 (FISH OIL) (FISH OIL) [Concomitant]
  10. FLAX SEED OIL (LINUM USITATISSIMUM SEED OIL) (LINUM USITATISSIMUM SEED [Concomitant]

REACTIONS (8)
  - BLOOD TRIGLYCERIDES INCREASED [None]
  - CONSTIPATION [None]
  - CORONARY ARTERY OCCLUSION [None]
  - DRUG INTOLERANCE [None]
  - GASTROOESOPHAGEAL REFLUX DISEASE [None]
  - HAEMORRHOIDS [None]
  - MUSCLE SPASMS [None]
  - RECTAL HAEMORRHAGE [None]
